FAERS Safety Report 8564867-8 (Version None)
Quarter: 2012Q3

REPORT INFORMATION
  Report Type: 
  Country: None (occurrence: None)
  Receive Date: 20120803
  Receipt Date: 20120607
  Transmission Date: 20120928
  Serious: No
  Sender: FDA-Public Use
  Company Number: US-GLAXOSMITHKLINE-A0980469A

PATIENT
  Age: 27 Year
  Sex: Female

DRUGS (1)
  1. HORIZANT [Suspect]
     Indication: RESTLESS LEGS SYNDROME
     Dosage: 600MG PER DAY
     Route: 048
     Dates: start: 20120525, end: 20120603

REACTIONS (4)
  - NAUSEA [None]
  - DIZZINESS [None]
  - SOMNOLENCE [None]
  - RESTLESS LEGS SYNDROME [None]
